FAERS Safety Report 8741124 (Version 6)
Quarter: 2013Q1

REPORT INFORMATION
  Report Type: Spontaneous
  Country: US (occurrence: US)
  Receive Date: 20120824
  Receipt Date: 20130120
  Transmission Date: 20140127
  Serious: No
  Sender: FDA-Public Use
  Company Number: US-ASTRAZENECA-2012SE02669

PATIENT
  Age: 76 Year
  Sex: Female

DRUGS (3)
  1. SYMBICORT PMDI [Suspect]
     Route: 055
  2. NEXIUM [Suspect]
     Route: 048
  3. ACIPHEX [Concomitant]

REACTIONS (16)
  - Dyspnoea [Unknown]
  - Gastrooesophageal reflux disease [Unknown]
  - Multiple allergies [Unknown]
  - Drug withdrawal syndrome [Unknown]
  - Gastrooesophageal reflux disease [Unknown]
  - Condition aggravated [Unknown]
  - Hypoacusis [Unknown]
  - Hiatus hernia [Unknown]
  - Sputum discoloured [Unknown]
  - Fatigue [Unknown]
  - Fatigue [Unknown]
  - Abdominal pain upper [Unknown]
  - Laryngitis [Unknown]
  - Cough [Unknown]
  - Pharyngeal disorder [Unknown]
  - Drug dose omission [Unknown]
